FAERS Safety Report 8094522-2 (Version None)
Quarter: 2012Q1

REPORT INFORMATION
  Report Type: 
  Country: None (occurrence: None)
  Receive Date: 20120131
  Receipt Date: 20120117
  Transmission Date: 20120608
  Serious: Yes (Life-Threatening, Other)
  Sender: FDA-Public Use
  Company Number: NL-NOVOPROD-340838

PATIENT
  Age: 62 Year
  Sex: Male
  Weight: 125 kg

DRUGS (2)
  1. VICTOZA [Suspect]
     Indication: TYPE 2 DIABETES MELLITUS
     Dosage: UNK
     Route: 065
     Dates: start: 20110501, end: 20110801
  2. MIRTAZAPINE [Concomitant]
     Dosage: 1
     Dates: start: 20110901

REACTIONS (6)
  - SUICIDAL IDEATION [None]
  - SEXUAL DYSFUNCTION [None]
  - DEPRESSION [None]
  - DECREASED APPETITE [None]
  - NAUSEA [None]
  - MENTAL IMPAIRMENT [None]
